FAERS Safety Report 18259956 (Version 2)
Quarter: 2020Q4

REPORT INFORMATION
  Report Type: Report from Study
  Country: US (occurrence: US)
  Receive Date: 20200912
  Receipt Date: 20201023
  Transmission Date: 20210113
  Serious: Yes (Hospitalization)
  Sender: FDA-Public Use
  Company Number: US-JNJFOC-A-NJ2019-188488

PATIENT
  Age: 77 Year
  Sex: Female
  Weight: 99.77 kg

DRUGS (22)
  1. OPSUMIT [Suspect]
     Active Substance: MACITENTAN
     Indication: PULMONARY HYPERTENSION
     Dosage: 10 MG, QD
     Route: 048
     Dates: start: 20180514
  2. UPTRAVI [Suspect]
     Active Substance: SELEXIPAG
     Indication: PULMONARY HYPERTENSION
     Route: 048
     Dates: start: 20190307
  3. UPTRAVI [Suspect]
     Active Substance: SELEXIPAG
     Dosage: 800 MCG, QAM
     Route: 048
  4. UPTRAVI [Suspect]
     Active Substance: SELEXIPAG
     Dosage: 800 MCG, BID
     Route: 048
  5. UPTRAVI [Suspect]
     Active Substance: SELEXIPAG
     Dosage: 1400 MCG, BID
     Route: 048
  6. SILDENAFIL CITRATE. [Concomitant]
     Active Substance: SILDENAFIL CITRATE
     Dates: start: 20180423
  7. MYCOPHENOLATE [Concomitant]
     Active Substance: MYCOPHENOLIC ACID
     Dosage: 500 MCG TAPERING DOSE
  8. CRESTOR [Concomitant]
     Active Substance: ROSUVASTATIN CALCIUM
     Dosage: 5 MG, OD
  9. LUNESTA [Concomitant]
     Active Substance: ESZOPICLONE
     Dates: start: 20190918
  10. UPTRAVI [Suspect]
     Active Substance: SELEXIPAG
     Dosage: 400 MCG, BID
     Route: 048
     Dates: start: 20190322
  11. UPTRAVI [Suspect]
     Active Substance: SELEXIPAG
     Dosage: UNK
     Route: 048
     Dates: start: 20190307
  12. ALTACE [Concomitant]
     Active Substance: RAMIPRIL
     Dosage: 10 MG, OD
  13. RAMIPRIL. [Concomitant]
     Active Substance: RAMIPRIL
     Dates: start: 20180205
  14. OPSUMIT [Suspect]
     Active Substance: MACITENTAN
     Dosage: UNK
     Route: 048
     Dates: start: 20190514
  15. UPTRAVI [Suspect]
     Active Substance: SELEXIPAG
     Dosage: 1000 MCG, BID
     Route: 048
  16. UPTRAVI [Suspect]
     Active Substance: SELEXIPAG
     Dosage: 1600 MCG, BID
     Route: 048
  17. UPTRAVI [Suspect]
     Active Substance: SELEXIPAG
     Dosage: 200 MCG, BID
     Route: 048
  18. UPTRAVI [Suspect]
     Active Substance: SELEXIPAG
     Dosage: 1200 MCG, BID
     Route: 048
  19. UPTRAVI [Suspect]
     Active Substance: SELEXIPAG
     Dosage: 1000 MCG, QPM
     Route: 048
  20. ROSUVASTATIN. [Concomitant]
     Active Substance: ROSUVASTATIN
     Dates: start: 20180205
  21. BUSPIRONE [Concomitant]
     Active Substance: BUSPIRONE HYDROCHLORIDE
     Dates: start: 20200716
  22. VILAZODONE [Concomitant]
     Active Substance: VILAZODONE
     Dates: start: 20190730

REACTIONS (28)
  - Atrial fibrillation [Unknown]
  - Nasal congestion [Unknown]
  - Migraine [Unknown]
  - Antinuclear antibody positive [Unknown]
  - Fluid retention [Unknown]
  - Sjogren^s syndrome [Unknown]
  - Dyspnoea [Unknown]
  - Depressed mood [Unknown]
  - Gastrointestinal haemorrhage [Unknown]
  - Headache [Unknown]
  - Peripheral swelling [Unknown]
  - Pneumonia [Recovered/Resolved]
  - Crying [Unknown]
  - Anxiety [Unknown]
  - Dizziness [Unknown]
  - Interstitial lung disease [Unknown]
  - Depression [Unknown]
  - Oxygen consumption increased [Unknown]
  - Autoimmune disorder [Unknown]
  - Heart rate increased [Unknown]
  - Diarrhoea [Not Recovered/Not Resolved]
  - Feeling abnormal [Unknown]
  - Weight decreased [Recovered/Resolved]
  - Abdominal pain upper [Unknown]
  - Nausea [Unknown]
  - Dehydration [Unknown]
  - Malaise [Not Recovered/Not Resolved]
  - Upper respiratory tract infection [Not Recovered/Not Resolved]

NARRATIVE: CASE EVENT DATE: 20180530
